FAERS Safety Report 7228736 (Version 7)
Quarter: 2012Q4

REPORT INFORMATION
  Report Type: 
  Country: US (occurrence: US)
  Receive Date: 20091223
  Receipt Date: 20121022
  Transmission Date: 20130627
  Serious: Yes (Hospitalization, Other)
  Sender: FDA-Public Use
  Company Number: US-BAYER-200943252NA

PATIENT
  Age: 39 Year
  Sex: Female
  Weight: 59 kg

DRUGS (12)
  1. YASMIN [Suspect]
     Indication: CONTRACEPTION
     Dosage: DISCREPANCIES WERE NOTED : MEDICAL RECORDS STATES ^NOT ON ESTROGEN PILL^ AT TIME OF EVENT
     Route: 048
     Dates: start: 200508, end: 200608
  2. YAZ [Suspect]
     Indication: CONTRACEPTION
     Dosage: DISCREPANCIES WERE NOTED : MEDICAL RECORDS STATES ^NOT ON ESTROGEN PILL^ AT TIME OF EVENT
     Route: 048
     Dates: start: 2005, end: 2006
  3. ASPIRIN (E.C.) [ACETYLSALICYLIC ACID] [Concomitant]
     Dosage: 81 mg, QD
  4. TEMAZEPAM [Concomitant]
  5. HYDROCODONE [HYDROCODONE] [Concomitant]
  6. FOLIC ACID [Concomitant]
  7. GLYCOLAX [Concomitant]
  8. LIPITOR [Concomitant]
  9. SERTRALINE [Concomitant]
  10. PROMETHAZINE [PROMETHAZINE] [Concomitant]
  11. ZOLPIDEM [Concomitant]
  12. PROTONIX [Concomitant]
     Indication: DYSPEPSIA

REACTIONS (16)
  - Cerebral artery thrombosis [Unknown]
  - Cerebral artery embolism [None]
  - Cerebral infarction [Recovering/Resolving]
  - Pulmonary embolism [Unknown]
  - Hemiparesis [Recovering/Resolving]
  - Amnesia [Recovering/Resolving]
  - Speech disorder [Recovering/Resolving]
  - Cognitive disorder [Recovering/Resolving]
  - Headache [Recovering/Resolving]
  - Grand mal convulsion [None]
  - Convulsion [None]
  - Vomiting [Recovering/Resolving]
  - Dysarthria [Recovering/Resolving]
  - Asthenia [Recovering/Resolving]
  - VIIth nerve paralysis [Recovering/Resolving]
  - Atelectasis [Unknown]
